FAERS Safety Report 9126762 (Version 1)
Quarter: 2013Q1

REPORT INFORMATION
  Report Type: Spontaneous
  Country: US (occurrence: US)
  Receive Date: 20130122
  Receipt Date: 20130122
  Transmission Date: 20140127
  Serious: No
  Sender: FDA-Public Use
  Company Number: US-PFIZER INC-2013023891

PATIENT
  Sex: Female

DRUGS (2)
  1. SERTRALINE HCL [Suspect]
     Dosage: 50 MG, DAILY
     Dates: start: 201212
  2. SERTRALINE HCL [Suspect]
     Dosage: 75 MG, DAILY

REACTIONS (1)
  - Tremor [Unknown]
